FAERS Safety Report 18503180 (Version 1)
Quarter: 2020Q4

REPORT INFORMATION
  Report Type: Report from Study
  Country: IN (occurrence: IN)
  Receive Date: 20201113
  Receipt Date: 20201113
  Transmission Date: 20210114
  Serious: Yes (Death, Hospitalization)
  Sender: FDA-Public Use
  Company Number: NVSC2020IN130715

PATIENT
  Age: 61 Year
  Sex: Male

DRUGS (1)
  1. NISTAMI [Suspect]
     Active Substance: GLYCOPYRROLATE\INDACATEROL MALEATE
     Indication: CHRONIC OBSTRUCTIVE PULMONARY DISEASE
     Dosage: UNK, QD
     Route: 055
     Dates: start: 201905

REACTIONS (2)
  - Pneumonia [Fatal]
  - Dyspnoea [Unknown]

NARRATIVE: CASE EVENT DATE: 20190919
